FAERS Safety Report 6233446-X (Version None)
Quarter: 2009Q2

REPORT INFORMATION
  Report Type: 
  Country: None (occurrence: None)
  Receive Date: 20090617
  Receipt Date: 20090608
  Transmission Date: 20091009
  Serious: Yes (Other)
  Sender: FDA-Public Use
  Company Number: US-ELI_LILLY_AND_COMPANY-US200906002015

PATIENT
  Sex: Female

DRUGS (3)
  1. EVISTA [Suspect]
     Dosage: 60 MG, DAILY (1/D)
     Route: 065
  2. AROMASIN [Concomitant]
     Dosage: 25 MG, DAILY (1/D)
     Route: 065
  3. FOSAMAX [Concomitant]
     Dosage: 70 MG, WEEKLY (1/W)
     Route: 065

REACTIONS (3)
  - BONE PAIN [None]
  - CARDIAC DISORDER [None]
  - CHEST PAIN [None]
